FAERS Safety Report 11405338 (Version 1)
Quarter: 2015Q3

REPORT INFORMATION
  Report Type: Spontaneous
  Country: JP (occurrence: JP)
  Receive Date: 20150821
  Receipt Date: 20150821
  Transmission Date: 20151125
  Serious: Yes (Other)
  Sender: FDA-Public Use
  Company Number: JP-PFIZER INC-2015275865

PATIENT
  Age: 71 Year
  Sex: Female

DRUGS (2)
  1. LIPITOR [Suspect]
     Active Substance: ATORVASTATIN CALCIUM
     Dosage: UNK
     Route: 048
  2. EQUA [Concomitant]
     Active Substance: VILDAGLIPTIN
     Dosage: UNK

REACTIONS (1)
  - Diabetes mellitus [Not Recovered/Not Resolved]
